FAERS Safety Report 15016798 (Version 1)
Quarter: 2018Q2

REPORT INFORMATION
  Report Type: Spontaneous
  Country: IT (occurrence: IT)
  Receive Date: 20180615
  Receipt Date: 20180615
  Transmission Date: 20180711
  Serious: Yes (Hospitalization)
  Sender: FDA-Public Use
  Company Number: IT-PFIZER INC-2018242360

PATIENT
  Age: 60 Year
  Sex: Female

DRUGS (9)
  1. LENTO-KALIUM [Concomitant]
     Active Substance: POTASSIUM CHLORIDE
     Dosage: UNK
  2. PANTOPRAZOLE [Concomitant]
     Active Substance: PANTOPRAZOLE
     Dosage: UNK
  3. DEPAKIN CHRONO /00228502/ [Suspect]
     Active Substance: VALPROATE SODIUM
     Indication: EPILEPSY
     Dosage: 1000 MG, 1X/DAY
     Route: 048
     Dates: start: 20170101, end: 20180131
  4. TAMOXIFEN [Concomitant]
     Active Substance: TAMOXIFEN
     Dosage: UNK
  5. DIAMOX /00016901/ [Concomitant]
     Active Substance: ACETAZOLAMIDE
     Dosage: UNK
  6. CARDIOASPIRIN [Concomitant]
     Active Substance: ASPIRIN
     Dosage: UNK
  7. TRITTICO [Suspect]
     Active Substance: TRAZODONE HYDROCHLORIDE
     Indication: PSYCHOTIC DISORDER
     Dosage: 75 MG, 1X/DAY
     Route: 048
     Dates: start: 20170101, end: 20180131
  8. TAVOR (LORAZEPAM) [Suspect]
     Active Substance: LORAZEPAM
     Indication: PSYCHOTIC DISORDER
     Dosage: 1 DF, 1X/DAY
     Route: 048
     Dates: start: 20170101, end: 20180131
  9. FLUXUM [Concomitant]
     Active Substance: PARNAPARIN SODIUM
     Dosage: UNK

REACTIONS (2)
  - Respiratory failure [Unknown]
  - Cardiac failure [Unknown]

NARRATIVE: CASE EVENT DATE: 20180131
